FAERS Safety Report 9639490 (Version 2)
Quarter: 2013Q4

REPORT INFORMATION
  Report Type: Spontaneous
  Country: US (occurrence: US)
  Receive Date: 20131023
  Receipt Date: 20131101
  Transmission Date: 20140711
  Serious: Yes (Death, Hospitalization, Other)
  Sender: FDA-Public Use
  Company Number: US-ROCHE-1291549

PATIENT
  Age: 62 Year
  Sex: Female
  Weight: 90.8 kg

DRUGS (30)
  1. AVASTIN [Suspect]
     Indication: COLON CANCER METASTATIC
     Route: 065
     Dates: start: 20130703
  2. AVASTIN [Suspect]
     Route: 065
     Dates: start: 20130724
  3. AVASTIN [Suspect]
     Route: 065
     Dates: start: 20130814
  4. AVASTIN [Suspect]
     Route: 065
     Dates: start: 20130909
  5. XELODA [Suspect]
     Indication: COLON CANCER METASTATIC
     Route: 065
     Dates: start: 20130703
  6. XELODA [Suspect]
     Route: 065
     Dates: start: 20130724
  7. XELODA [Suspect]
     Route: 065
     Dates: start: 20130814
  8. XELODA [Suspect]
     Route: 065
     Dates: start: 20130909
  9. OXALIPLATIN [Suspect]
     Indication: COLON CANCER METASTATIC
     Route: 065
     Dates: start: 20130703
  10. OXALIPLATIN [Suspect]
     Route: 065
     Dates: start: 20130724
  11. OXALIPLATIN [Suspect]
     Route: 065
     Dates: start: 20130814
  12. OXALIPLATIN [Suspect]
     Route: 065
     Dates: start: 20130909
  13. 5-FLUOROURACIL [Suspect]
     Indication: COLON CANCER METASTATIC
     Route: 040
  14. 5-FLUOROURACIL [Suspect]
     Route: 042
  15. IRINOTECAN [Suspect]
     Indication: COLON CANCER METASTATIC
     Route: 065
  16. LEUCOVORIN [Suspect]
     Indication: COLON CANCER METASTATIC
     Route: 065
  17. VENLAFAXINE [Concomitant]
     Route: 048
  18. SYNTHROID [Concomitant]
     Dosage: ONCE A DAILY
     Route: 065
  19. ZOCOR [Concomitant]
  20. PRILOSEC [Concomitant]
     Dosage: DAILY
     Route: 065
  21. ULTRAM [Concomitant]
  22. NORCO [Concomitant]
  23. EFFEXOR [Concomitant]
     Route: 048
  24. GLUCOPHAGE [Concomitant]
  25. AZULFIDINE [Concomitant]
     Dosage: DAILY
     Route: 065
  26. NEURONTIN (UNITED STATES) [Concomitant]
     Dosage: AT BEDTIME DAILY
     Route: 065
  27. ALBUTEROL [Concomitant]
     Dosage: 2 PUFFS
     Route: 065
  28. DIAZEPAM [Concomitant]
     Indication: ANXIETY
     Route: 065
  29. OMEPRAZOLE [Concomitant]
     Route: 065
  30. POTASSIUM CHLORIDE [Concomitant]
     Route: 048

REACTIONS (5)
  - Neoplasm progression [Fatal]
  - Large intestine perforation [Fatal]
  - Gastroenteritis [Unknown]
  - Spinal compression fracture [Unknown]
  - Neutropenia [Recovered/Resolved]
